FAERS Safety Report 13856847 (Version 1)
Quarter: 2017Q3

REPORT INFORMATION
  Report Type: Spontaneous
  Country: US (occurrence: US)
  Receive Date: 20170810
  Receipt Date: 20170810
  Transmission Date: 20171127
  Serious: No
  Sender: FDA-Public Use
  Company Number: US-ROCHE-1163654

PATIENT
  Sex: Female

DRUGS (1)
  1. TAMIFLU [Suspect]
     Active Substance: OSELTAMIVIR PHOSPHATE
     Indication: ANTIVIRAL PROPHYLAXIS
     Route: 065
     Dates: start: 20121201

REACTIONS (4)
  - Nausea [Not Recovered/Not Resolved]
  - Oral herpes [Not Recovered/Not Resolved]
  - Vomiting [Unknown]
  - Dyspnoea [Recovering/Resolving]
